FAERS Safety Report 9973688 (Version 1)
Quarter: 2014Q1

REPORT INFORMATION
  Report Type: Spontaneous
  Country: DE (occurrence: DE)
  Receive Date: 20140306
  Receipt Date: 20140306
  Transmission Date: 20141002
  Serious: Yes (Other)
  Sender: FDA-Public Use
  Company Number: DE-PFIZER INC-2014057693

PATIENT
  Age: 32 Year
  Sex: Female
  Weight: 128 kg

DRUGS (6)
  1. RAMIPRIL [Suspect]
     Indication: HYPERTENSION
     Dosage: 5 MG, 1X/DAY
     Route: 048
     Dates: start: 20121010, end: 20121015
  2. EDARBI [Suspect]
     Indication: HYPERTENSION
     Dosage: 20 MG, 1X/DAY
     Route: 048
     Dates: start: 20120607, end: 20121009
  3. EDARBI [Suspect]
     Dosage: 20 MG, 1X/DAY
     Route: 048
     Dates: start: 20121016, end: 20121119
  4. METHYLDOPA [Concomitant]
     Indication: HYPERTENSION
     Dosage: 250 MG, 3X/DAY
     Route: 048
     Dates: start: 20121121, end: 20130311
  5. INFLUSPLIT SSW [Concomitant]
     Indication: IMMUNISATION
     Dosage: UNK
     Route: 030
     Dates: start: 20121019, end: 20121019
  6. FOLIO FORTE [Concomitant]
     Indication: PROPHYLAXIS OF NEURAL TUBE DEFECT
     Dosage: 0.8 MG, 1X/DAY
     Route: 048
     Dates: start: 20120607, end: 20130311

REACTIONS (4)
  - Oligohydramnios [Recovered/Resolved]
  - Diabetes mellitus [Unknown]
  - Premature rupture of membranes [Unknown]
  - Vomiting [Unknown]
